FAERS Safety Report 22186453 (Version 1)
Quarter: 2023Q2

REPORT INFORMATION
  Report Type: Spontaneous
  Country: UA (occurrence: UA)
  Receive Date: 20230407
  Receipt Date: 20230407
  Transmission Date: 20230721
  Serious: Yes (Life-Threatening, Hospitalization, Other)
  Sender: FDA-Public Use
  Company Number: UA-BAYER-2021A248921

PATIENT
  Age: 83 Year
  Sex: Male

DRUGS (4)
  1. XARELTO [Suspect]
     Active Substance: RIVAROXABAN
     Indication: COVID-19
     Dosage: 15 MG, QD
     Route: 048
     Dates: start: 202010
  2. XARELTO [Suspect]
     Active Substance: RIVAROXABAN
     Indication: Pneumonia
     Route: 048
  3. DEXAMETHASONE [Concomitant]
     Active Substance: DEXAMETHASONE
     Indication: COVID-19
  4. DEXAMETHASONE [Concomitant]
     Active Substance: DEXAMETHASONE
     Indication: Pneumonia

REACTIONS (4)
  - Peripheral arterial occlusive disease [Unknown]
  - Deep vein thrombosis [Unknown]
  - Peripheral ischaemia [Unknown]
  - Off label use [Unknown]

NARRATIVE: CASE EVENT DATE: 20200101
